FAERS Safety Report 19901049 (Version 1)
Quarter: 2021Q3

REPORT INFORMATION
  Report Type: Spontaneous
  Country: CN (occurrence: CN)
  Receive Date: 20210929
  Receipt Date: 20210929
  Transmission Date: 20211014
  Serious: Yes (Hospitalization, Other)
  Sender: FDA-Public Use
  Company Number: CN-009507513-2109CHN006477

PATIENT
  Age: 51 Year
  Sex: Male
  Weight: 71 kg

DRUGS (3)
  1. CISPLATIN. [Suspect]
     Active Substance: CISPLATIN
     Indication: CHEMOTHERAPY
     Dosage: 95 MG, ONCE DAILY
     Route: 041
     Dates: start: 20210504, end: 20210504
  2. KEYTRUDA [Suspect]
     Active Substance: PEMBROLIZUMAB
     Dosage: 200 MG, ONCE
     Route: 041
     Dates: start: 20210421, end: 20210421
  3. ETOPOSIDE. [Suspect]
     Active Substance: ETOPOSIDE
     Indication: CHEMOTHERAPY
     Dosage: 95 MG, ONCE DAILY
     Route: 041
     Dates: start: 20210429, end: 20210503

REACTIONS (6)
  - Rash pruritic [Unknown]
  - Rash maculo-papular [Unknown]
  - Product use issue [Unknown]
  - Myelosuppression [Recovering/Resolving]
  - Productive cough [Unknown]
  - Pyrexia [Unknown]

NARRATIVE: CASE EVENT DATE: 20210429
